FAERS Safety Report 16954857 (Version 1)
Quarter: 2019Q4

REPORT INFORMATION
  Report Type: Spontaneous
  Country: US (occurrence: US)
  Receive Date: 20191024
  Receipt Date: 20191024
  Transmission Date: 20200122
  Serious: No
  Sender: FDA-Public Use
  Company Number: US-JNJFOC-20191025459

PATIENT
  Sex: Male
  Weight: 63.56 kg

DRUGS (1)
  1. ZYRTEC [Suspect]
     Active Substance: CETIRIZINE HYDROCHLORIDE
     Indication: SINUS DISORDER
     Dosage: 1 TABLET ONCE?DATE PRODUCT LAST ADMINISTERED: 15/OCT/2019
     Route: 048
     Dates: start: 20191015

REACTIONS (2)
  - Product administration error [Unknown]
  - Product use in unapproved indication [Unknown]
